FAERS Safety Report 8166584-5 (Version None)
Quarter: 2012Q1

REPORT INFORMATION
  Report Type: 
  Country: None (occurrence: None)
  Receive Date: 20120227
  Receipt Date: 20120220
  Transmission Date: 20120608
  Serious: Yes (Hospitalization, Other)
  Sender: FDA-Public Use
  Company Number: AU-B.I. PHARMACEUTICALS,INC./RIDGEFIELD-2011-AU-02097AU

PATIENT
  Sex: Male

DRUGS (4)
  1. RAMIPRIL [Concomitant]
  2. METFORMIN HCL [Concomitant]
  3. PRADAXA [Suspect]
     Indication: THROMBOSIS PROPHYLAXIS
     Dosage: 220 MG
     Dates: start: 20110603, end: 20111006
  4. SIMVASTATIN [Concomitant]

REACTIONS (1)
  - ISCHAEMIC STROKE [None]
